FAERS Safety Report 25989477 (Version 3)
Quarter: 2025Q4

REPORT INFORMATION
  Report Type: Spontaneous
  Country: EU (occurrence: EU)
  Receive Date: 20251103
  Receipt Date: 20251218
  Transmission Date: 20260118
  Serious: Yes (Hospitalization, Other)
  Sender: BAUSCH AND LOMB
  Company Number: EU-AMGEN-IRLSL2025174452

PATIENT
  Age: 60 Year
  Sex: Female

DRUGS (9)
  1. DEXAMETHASONE [Suspect]
     Active Substance: DEXAMETHASONE
     Indication: Product used for unknown indication
     Dosage: 40 MILLIGRAM (ADMINISTERED SLOWLY AS PRESCRIBED VIA PORT)
     Route: 042
     Dates: start: 202509
  2. KYPROLIS [Suspect]
     Active Substance: CARFILZOMIB
     Indication: Plasma cell myeloma
     Dosage: 90 MILLIGRAM/SQ. METER, AS PER PRESCRIPTION
     Route: 042
     Dates: start: 20250822
  3. KYPROLIS [Suspect]
     Active Substance: CARFILZOMIB
     Dosage: 90 MILLIGRAM/SQ. METER, AS PER PRESCRIPTION
     Route: 042
     Dates: start: 20250829
  4. KYPROLIS [Suspect]
     Active Substance: CARFILZOMIB
     Dosage: 90 MILLIGRAM/SQ. METER, AS PER PRESCRIPTION
     Route: 042
     Dates: start: 20250919
  5. KYPROLIS [Suspect]
     Active Substance: CARFILZOMIB
     Dosage: 90 MILLIGRAM/SQ. METER, AS PER PRESCRIPTION
     Route: 042
     Dates: start: 20250926
  6. KYPROLIS [Suspect]
     Active Substance: CARFILZOMIB
     Dosage: 90 MILLIGRAM/SQ. METER, AS PER PRESCRIPTION
     Route: 042
     Dates: start: 20251017
  7. KYPROLIS [Suspect]
     Active Substance: CARFILZOMIB
     Dosage: 90 MILLIGRAM/SQ. METER, AS PER PRESCRIPTION
     Route: 042
     Dates: start: 20251024
  8. KYPROLIS [Suspect]
     Active Substance: CARFILZOMIB
     Dosage: 90 MILLIGRAM/SQ. METER, AS PER PRESCRIPTION
     Route: 042
     Dates: start: 20251128
  9. BORTEZOMIB [Concomitant]
     Active Substance: BORTEZOMIB
     Indication: Product used for unknown indication
     Dosage: 2 MILLIGRAMS, AS PER PRESCRIPTION
     Route: 058

REACTIONS (6)
  - Transfusion [Unknown]
  - Pneumonia [Recovered/Resolved]
  - Clostridium difficile infection [Recovered/Resolved]
  - Fatigue [Unknown]
  - Asthenia [Recovered/Resolved]
  - Paraesthesia [Not Recovered/Not Resolved]

NARRATIVE: CASE EVENT DATE: 20250801
